FAERS Safety Report 7502869 (Version 2)
Quarter: 2015Q1

REPORT INFORMATION
  Report Type: Report from Study
  Country: JP (occurrence: JP)
  Receive Date: 20100727
  Receipt Date: 20150302
  Transmission Date: 20150721
  Serious: Yes (Hospitalization)
  Sender: FDA-Public Use
  Company Number: JP-PFIZER INC-2005051753

PATIENT
  Age: 6 Year
  Sex: Female
  Weight: 14 kg

DRUGS (2)
  1. SOMATROPIN [Suspect]
     Active Substance: SOMATROPIN
     Dosage: 0.9 MG, 1X/DAY
     Dates: start: 20041113, end: 20050328
  2. SOMATROPIN [Suspect]
     Active Substance: SOMATROPIN
     Indication: SMALL FOR DATES BABY
     Dosage: 0.7 MG, 1X/DAY
     Dates: start: 20030508, end: 20041112

REACTIONS (2)
  - Otitis media [Recovering/Resolving]
  - Adenoidal hypertrophy [Recovering/Resolving]

NARRATIVE: CASE EVENT DATE: 20050105
